FAERS Safety Report 4866317-1 (Version None)
Quarter: 2005Q4

REPORT INFORMATION
  Report Type: 
  Country: None (occurrence: None)
  Receive Date: 20051227
  Receipt Date: 20051208
  Transmission Date: 20060501
  Serious: Yes (Other)
  Sender: FDA-Public Use
  Company Number: FI-SANOFI-SYNTHELABO-A01200508703

PATIENT
  Age: 69 Year
  Sex: Female

DRUGS (9)
  1. PLAVIX [Suspect]
     Indication: ARTERIOSCLEROSIS
     Route: 048
     Dates: start: 20051026, end: 20051101
  2. INSULIN [Concomitant]
     Indication: DIABETES MELLITUS
     Dosage: UNK
     Route: 065
     Dates: start: 19990101
  3. METFORMIN [Concomitant]
     Indication: DIABETES MELLITUS
     Dosage: UNK
     Route: 048
     Dates: start: 19990101
  4. AMARYL [Concomitant]
     Indication: DIABETES MELLITUS
     Dosage: UNK
     Route: 048
     Dates: start: 19990101
  5. COZAAR [Concomitant]
     Indication: HYPERTONIA
     Route: 048
  6. NORVASC [Concomitant]
     Indication: HYPERTONIA
     Route: 048
  7. CRESTOR [Concomitant]
     Indication: DYSLIPIDAEMIA
     Route: 048
  8. ASPIRIN [Concomitant]
     Indication: DYSLIPIDAEMIA
     Route: 048
     Dates: end: 20051101
  9. ASPIRIN [Concomitant]
     Route: 048
     Dates: start: 20051121

REACTIONS (2)
  - HAEMOGLOBIN DECREASED [None]
  - POLYMYALGIA RHEUMATICA [None]
